FAERS Safety Report 12434315 (Version 2)
Quarter: 2017Q2

REPORT INFORMATION
  Report Type: Report from Study
  Country: CA (occurrence: CA)
  Receive Date: 20160603
  Receipt Date: 20170406
  Transmission Date: 20170830
  Serious: Yes (Other)
  Sender: FDA-Public Use
  Company Number: CA-009507513-1606CAN000135

PATIENT
  Age: 60 Year
  Sex: Female

DRUGS (2)
  1. INTRON A [Suspect]
     Active Substance: INTERFERON ALFA-2B
     Indication: MYCOSIS FUNGOIDES
     Dosage: 4.5 MIU, THRICE A WEEK
     Route: 058
  2. INTRON A [Suspect]
     Active Substance: INTERFERON ALFA-2B
     Dosage: 5.5 MIU, 3 TIMES PER WEEK
     Route: 058
     Dates: start: 20160422

REACTIONS (6)
  - Adverse event [Unknown]
  - Malaise [Unknown]
  - Erythema [Unknown]
  - Off label use [Unknown]
  - Deep vein thrombosis [Unknown]
  - Pruritus [Unknown]

NARRATIVE: CASE EVENT DATE: 201605
